FAERS Safety Report 7400405-0 (Version None)
Quarter: 2011Q2

REPORT INFORMATION
  Report Type: 
  Country: None (occurrence: None)
  Receive Date: 20110407
  Receipt Date: 20110404
  Transmission Date: 20111010
  Serious: No
  Sender: FDA-Public Use
  Company Number: US-TEVA-274991USA

PATIENT
  Sex: Female
  Weight: 61.29 kg

DRUGS (2)
  1. PLAN B ONE-STEP [Suspect]
     Indication: POST COITAL CONTRACEPTION
     Route: 048
     Dates: start: 20110330, end: 20110330
  2. PLAN B ONE-STEP [Suspect]
     Route: 048
     Dates: start: 20110401, end: 20110401

REACTIONS (5)
  - NAUSEA [None]
  - VOMITING [None]
  - PAIN [None]
  - ABDOMINAL PAIN [None]
  - HEADACHE [None]
